FAERS Safety Report 8241733-9 (Version None)
Quarter: 2012Q1

REPORT INFORMATION
  Report Type: 
  Country: None (occurrence: None)
  Receive Date: 20120328
  Receipt Date: 20120323
  Transmission Date: 20120608
  Serious: No
  Sender: FDA-Public Use
  Company Number: US-PFIZER INC-2012076163

PATIENT
  Sex: Female

DRUGS (1)
  1. DETROL LA [Suspect]
     Dosage: UNK
     Route: 048

REACTIONS (4)
  - DYSPEPSIA [None]
  - ABDOMINAL PAIN UPPER [None]
  - NAUSEA [None]
  - CONSTIPATION [None]
